FAERS Safety Report 7326689-5 (Version None)
Quarter: 2011Q1

REPORT INFORMATION
  Report Type: 
  Country: None (occurrence: None)
  Receive Date: 20110302
  Receipt Date: 20110225
  Transmission Date: 20110831
  Serious: Yes (Other)
  Sender: FDA-Public Use
  Company Number: JP-PFIZER INC-2011042442

PATIENT
  Age: 79 Year
  Sex: Female

DRUGS (2)
  1. DEPAS [Concomitant]
     Route: 048
  2. LYRICA [Suspect]
     Dosage: 75 MG, 1X/DAY (BEFORE GOING TO BED)
     Route: 048

REACTIONS (3)
  - AMNESIA [None]
  - MUSCULOSKELETAL STIFFNESS [None]
  - FALL [None]
